FAERS Safety Report 23644722 (Version 1)
Quarter: 2024Q1

REPORT INFORMATION
  Report Type: Spontaneous
  Country: US (occurrence: None)
  Receive Date: 20240317
  Receipt Date: 20240317
  Transmission Date: 20240410
  Serious: Yes (Hospitalization)
  Sender: FDA-Public Use
  Company Number: None

PATIENT
  Age: 70 Year
  Sex: Female
  Weight: 97 kg

DRUGS (3)
  1. RINVOQ [Suspect]
     Active Substance: UPADACITINIB
     Indication: Rheumatoid arthritis
     Dosage: FREQUENCY : DAILY;?
     Route: 048
     Dates: start: 20230428, end: 20240225
  2. METHOTREXATE [Concomitant]
     Active Substance: METHOTREXATE
     Dates: start: 20230110
  3. PREDNISONE [Concomitant]
     Active Substance: PREDNISONE
     Dates: start: 20230111

REACTIONS (3)
  - Diverticulitis [None]
  - Large intestine perforation [None]
  - Disease complication [None]

NARRATIVE: CASE EVENT DATE: 20240225
